FAERS Safety Report 5976971-9 (Version None)
Quarter: 2008Q4

REPORT INFORMATION
  Report Type: 
  Country: None (occurrence: None)
  Receive Date: 20081203
  Receipt Date: 20080221
  Transmission Date: 20090506
  Serious: Yes (Other)
  Sender: FDA-Public Use
  Company Number: US-AMGEN-QUU263275

PATIENT
  Sex: Male

DRUGS (11)
  1. ENBREL [Suspect]
     Indication: RHEUMATOID ARTHRITIS
     Dates: start: 20050101
  2. PREDNISONE TAB [Concomitant]
  3. METHOTREXATE [Concomitant]
  4. PLAQUENIL [Concomitant]
  5. ALLOPURINOL [Concomitant]
  6. COLCHICINE [Concomitant]
  7. CELEBREX [Concomitant]
  8. FOLIC ACID [Concomitant]
  9. GLUCOSAMINE [Concomitant]
  10. CHONDROITIN [Concomitant]
  11. LOVAZA [Concomitant]

REACTIONS (3)
  - BASAL CELL CARCINOMA [None]
  - MALIGNANT MELANOMA [None]
  - SEBORRHOEIC KERATOSIS [None]
